FAERS Safety Report 9486676 (Version 1)
Quarter: 2013Q3

REPORT INFORMATION
  Report Type: Spontaneous
  Country: US (occurrence: US)
  Receive Date: 20130829
  Receipt Date: 20130829
  Transmission Date: 20140515
  Serious: Yes (Hospitalization, Other)
  Sender: FDA-Public Use
  Company Number: US-PFIZER INC-2013247381

PATIENT
  Sex: Male

DRUGS (3)
  1. LIPITOR [Suspect]
     Dosage: UNK
  2. DILANTIN-125 [Suspect]
     Dosage: UNK
  3. ZOLOFT [Suspect]
     Dosage: UNK

REACTIONS (6)
  - Pneumonia [Unknown]
  - Pyrexia [Unknown]
  - Convulsion [Unknown]
  - Speech disorder [Unknown]
  - Hypertension [Unknown]
  - Blood cholesterol increased [Unknown]
